FAERS Safety Report 8332130-6 (Version None)
Quarter: 2012Q2

REPORT INFORMATION
  Report Type: 
  Country: None (occurrence: None)
  Receive Date: 20120502
  Receipt Date: 20120419
  Transmission Date: 20120825
  Serious: Yes (Death, Hospitalization, Other)
  Sender: FDA-Public Use
  Company Number: US-MYLANLABS-2009AL004806

PATIENT
  Age: 57 Year
  Sex: Male

DRUGS (11)
  1. DILANTIN [Concomitant]
  2. LASIX [Concomitant]
  3. TRACLEER [Concomitant]
  4. PNEUMOVAX 23 [Concomitant]
  5. COUMADIN [Concomitant]
  6. POTASSIUM CHLORIDE [Concomitant]
  7. ASPIRIN [Concomitant]
  8. DIGOXIN [Suspect]
     Route: 048
     Dates: start: 20020829, end: 20071107
  9. ZOCOR [Concomitant]
  10. POLAN [Concomitant]
  11. FERROUS SULFATE TAB [Concomitant]

REACTIONS (32)
  - PULMONARY HYPERTENSION [None]
  - ASCITES [None]
  - OEDEMA PERIPHERAL [None]
  - CONVULSION [None]
  - FATIGUE [None]
  - HYPERLIPIDAEMIA [None]
  - HEPATOMEGALY [None]
  - SPLENOMEGALY [None]
  - HYPOTENSION [None]
  - PULMONARY VALVE REPLACEMENT [None]
  - GENERALISED OEDEMA [None]
  - CARDIAC FAILURE CONGESTIVE [None]
  - HYPOXIA [None]
  - DEATH [None]
  - CATHETERISATION CARDIAC [None]
  - CYANOSIS [None]
  - ECONOMIC PROBLEM [None]
  - CARDIAC MURMUR [None]
  - JUGULAR VEIN DISTENSION [None]
  - CONDITION AGGRAVATED [None]
  - PALPITATIONS [None]
  - HEART DISEASE CONGENITAL [None]
  - ATRIAL FIBRILLATION [None]
  - ILL-DEFINED DISORDER [None]
  - TETRALOGY OF FALLOT REPAIR [None]
  - BREATH SOUNDS ABNORMAL [None]
  - RENAL FAILURE CHRONIC [None]
  - POLYCYTHAEMIA [None]
  - PAIN IN EXTREMITY [None]
  - PLEURAL EFFUSION [None]
  - COUGH [None]
  - TACHYPNOEA [None]
